FAERS Safety Report 14499891 (Version 2)
Quarter: 2018Q1

REPORT INFORMATION
  Report Type: Spontaneous
  Country: US (occurrence: US)
  Receive Date: 20180207
  Receipt Date: 20180326
  Transmission Date: 20180509
  Serious: Yes (Hospitalization, Other)
  Sender: FDA-Public Use
  Company Number: US-ALLERGAN-1805893US

PATIENT
  Age: 79 Year
  Sex: Female

DRUGS (2)
  1. BOTOX [Suspect]
     Active Substance: ONABOTULINUMTOXINA
     Dosage: UNK, SINGLE
     Route: 030
     Dates: start: 20180124, end: 20180124
  2. BOTOX [Suspect]
     Active Substance: ONABOTULINUMTOXINA
     Indication: SPASMODIC DYSPHONIA
     Dosage: UNK, SINGLE
     Route: 030
     Dates: start: 201704, end: 201704

REACTIONS (3)
  - Off label use [Unknown]
  - Haemorrhage [Unknown]
  - Transient ischaemic attack [Unknown]
